APPROVED DRUG PRODUCT: INDAPAMIDE
Active Ingredient: INDAPAMIDE
Strength: 1.25MG
Dosage Form/Route: TABLET;ORAL
Application: A074498 | Product #002
Applicant: ANI PHARMACEUTICALS INC
Approved: Feb 12, 1998 | RLD: No | RS: No | Type: DISCN